FAERS Safety Report 20098584 (Version 1)
Quarter: 2021Q4

REPORT INFORMATION
  Report Type: Spontaneous
  Country: FR (occurrence: FR)
  Receive Date: 20211122
  Receipt Date: 20211122
  Transmission Date: 20220303
  Serious: Yes (Hospitalization)
  Sender: FDA-Public Use
  Company Number: None

PATIENT
  Age: 43 Year
  Sex: Male

DRUGS (2)
  1. CLINDAMYCIN [Suspect]
     Active Substance: CLINDAMYCIN
     Indication: Sycosis barbae
     Dosage: 600 MG, 4X/DAY
     Route: 042
     Dates: start: 20191125, end: 20191206
  2. BACTRIM [Suspect]
     Active Substance: SULFAMETHOXAZOLE\TRIMETHOPRIM
     Indication: Sycosis barbae
     Dosage: 800 MG, 2X/DAY
     Route: 048
     Dates: start: 20191127, end: 20191206

REACTIONS (2)
  - Type IV hypersensitivity reaction [Recovered/Resolved]
  - Allergy test negative [Recovered/Resolved]

NARRATIVE: CASE EVENT DATE: 20191205
